FAERS Safety Report 16608410 (Version 1)
Quarter: 2019Q3

REPORT INFORMATION
  Report Type: Spontaneous
  Country: US (occurrence: US)
  Receive Date: 20190722
  Receipt Date: 20190722
  Transmission Date: 20191004
  Serious: No
  Sender: FDA-Public Use
  Company Number: US-009507513-1907USA009699

PATIENT

DRUGS (1)
  1. TEMODAR [Suspect]
     Active Substance: TEMOZOLOMIDE
     Indication: PANCREATIC NEUROENDOCRINE TUMOUR METASTATIC
     Dosage: 1 CAPSULE DAILY, FOR 5 DAYS EVERY 28 DAYS
     Route: 048

REACTIONS (2)
  - Product use in unapproved indication [Unknown]
  - No adverse event [Unknown]
